FAERS Safety Report 19381414 (Version 1)
Quarter: 2021Q2

REPORT INFORMATION
  Report Type: Spontaneous
  Country: US (occurrence: US)
  Receive Date: 20210604
  Receipt Date: 20210604
  Transmission Date: 20210717
  Serious: No
  Sender: FDA-Public Use
  Company Number: None

PATIENT
  Sex: Male
  Weight: 75.15 kg

DRUGS (1)
  1. ERLEADA [Suspect]
     Active Substance: APALUTAMIDE
     Route: 048
     Dates: start: 20201212, end: 20210604

REACTIONS (1)
  - Disease progression [None]
